FAERS Safety Report 12977320 (Version 1)
Quarter: 2016Q4

REPORT INFORMATION
  Report Type: Spontaneous
  Country: US (occurrence: US)
  Receive Date: 20161128
  Receipt Date: 20161128
  Transmission Date: 20170207
  Serious: Yes (Death, Hospitalization, Other)
  Sender: FDA-Public Use
  Company Number: US-CLINIGEN GROUP PLC/ CLINIGEN HEALTHCARE LTD-E2B_00000706

PATIENT
  Age: 76 Year
  Sex: Male
  Weight: 75.8 kg

DRUGS (14)
  1. TAXOL [Concomitant]
     Active Substance: PACLITAXEL
     Dosage: UNK
     Route: 042
     Dates: start: 20060111
  2. VASOTEC [Concomitant]
     Active Substance: ENALAPRIL MALEATE
     Dosage: UNK UNK
     Route: 065
  3. TOPRAL [Concomitant]
     Active Substance: SULTOPRIDE HYDROCHLORIDE
     Route: 048
  4. DIGOXIN. [Concomitant]
     Active Substance: DIGOXIN
     Dosage: UNK UNK
     Route: 065
  5. RADIATION THERAPY [Concomitant]
     Active Substance: RADIATION THERAPY
     Dosage: TOTAL DOSE 6000 CGY 33 FRACTIONS
     Route: 065
  6. COUMADIN [Concomitant]
     Active Substance: WARFARIN SODIUM
     Dosage: UNK
     Route: 065
  7. LIPITOR [Concomitant]
     Active Substance: ATORVASTATIN CALCIUM
     Dosage: UNK UNK
     Route: 065
  8. AMARYL [Concomitant]
     Active Substance: GLIMEPIRIDE
     Route: 065
  9. CARBOPLATIN. [Concomitant]
     Active Substance: CARBOPLATIN
     Dosage: UNK UNK
     Route: 042
     Dates: start: 20060111
  10. ETHYOL [Suspect]
     Active Substance: AMIFOSTINE
     Indication: CHEMOTHERAPY
     Dosage: UNK
     Route: 058
     Dates: start: 20060105, end: 20060127
  11. ETHYOL [Suspect]
     Active Substance: AMIFOSTINE
     Indication: RADIOTHERAPY
     Dosage: UNK
     Route: 058
     Dates: start: 20060105, end: 20060127
  12. AVAPRO [Concomitant]
     Active Substance: IRBESARTAN
     Dosage: UNK
     Route: 048
  13. ASA [Concomitant]
     Active Substance: ASPIRIN
     Route: 065
  14. IMDUR [Concomitant]
     Active Substance: ISOSORBIDE MONONITRATE
     Dosage: UNK UNK
     Route: 065

REACTIONS (7)
  - Pain in extremity [Unknown]
  - Hypotension [Unknown]
  - Cachexia [Unknown]
  - Malaise [Unknown]
  - Myocardial infarction [Fatal]
  - Cardiac failure congestive [Unknown]
  - Respiratory failure [Unknown]

NARRATIVE: CASE EVENT DATE: 20060119
